FAERS Safety Report 9632878 (Version 1)
Quarter: 2013Q4

REPORT INFORMATION
  Report Type: Report from Study
  Country: RU (occurrence: RU)
  Receive Date: 20131018
  Receipt Date: 20131018
  Transmission Date: 20140711
  Serious: Yes (Other)
  Sender: FDA-Public Use
  Company Number: RU-US-EMD SERONO, INC.-7244245

PATIENT
  Age: 39 Year
  Sex: Female
  Weight: 68 kg

DRUGS (4)
  1. OVITRELLE [Suspect]
     Indication: OVULATION INDUCTION
     Dosage: SINGLE DOSE 6500 IU, TOTALLY 6500 IU, STARTED ON THE 14TH CYCLE DAY
  2. CETROTIDE (CETRORELIX ACETATE FOR INJECTION) [Suspect]
     Indication: OVULATION INDUCTION
     Dosage: SINGLE DOSE 250 (PRESUMABLY MCG), TOTALLY 250 (PRESUMABLY MCG), STARTED ON THE 7TH CYCLE DAY
  3. PUREGON [Suspect]
     Indication: OVULATION INDUCTION
     Dosage: SINGLE DOSE 150 IU, TOTALLY 150 IU PER CYCLE, STARTED ON THE 2ND CYCLE DAY
  4. MENOPUR /01277604/ [Suspect]
     Indication: OVULATION INDUCTION
     Dosage: SINGLE DOSE 75 IU, TOTALLY 75 IU PER CYCLE, STARTED ON THE 8TH CYCLE DAY

REACTIONS (2)
  - Abortion early [Unknown]
  - Drug ineffective [Unknown]
